FAERS Safety Report 4264011-1 (Version None)
Quarter: 2004Q1

REPORT INFORMATION
  Report Type: 
  Country: None (occurrence: None)
  Receive Date: 20040102
  Receipt Date: 20031222
  Transmission Date: 20041129
  Serious: Yes (Hospitalization)
  Sender: FDA-Public Use
  Company Number: GB-JNJFOC-20031204688

PATIENT

DRUGS (1)
  1. REMICADE [Suspect]
     Indication: CARCINOMA
     Dosage: 5 MG/KG, INTRAVENOUS
     Route: 042
     Dates: end: 20031209

REACTIONS (4)
  - JAUNDICE [None]
  - METASTASES TO LIVER [None]
  - PYREXIA [None]
  - ULTRASOUND LIVER ABNORMAL [None]
